FAERS Safety Report 14545874 (Version 2)
Quarter: 2018Q3

REPORT INFORMATION
  Report Type: Spontaneous
  Country: US (occurrence: US)
  Receive Date: 20180219
  Receipt Date: 20180703
  Transmission Date: 20181010
  Serious: Yes (Other)
  Sender: FDA-Public Use
  Company Number: US-MALLINCKRODT-T201800649

PATIENT
  Sex: Male

DRUGS (6)
  1. FENTANYL TRANSDERMAL SYSTEM [Suspect]
     Active Substance: FENTANYL
     Indication: PAIN
     Dosage: 0.25
     Route: 062
  2. METHADONE [Concomitant]
     Active Substance: METHADONE HYDROCHLORIDE
     Indication: BREAKTHROUGH PAIN
     Dosage: 25 MGS A DAY
     Route: 065
  3. CODEINE [Concomitant]
     Active Substance: CODEINE
     Indication: BREAKTHROUGH PAIN
     Dosage: FOUR TIMES A DAY
     Route: 065
  4. LYRICA [Concomitant]
     Active Substance: PREGABALIN
     Indication: BREAKTHROUGH PAIN
     Dosage: UNK
     Route: 065
  5. MORPHINE [Concomitant]
     Active Substance: MORPHINE
     Indication: BREAKTHROUGH PAIN
     Dosage: 15 MGS  EVERY 12 HOURS
     Route: 065
  6. FENTANYL TRANSDERMAL SYSTEM [Suspect]
     Active Substance: FENTANYL
     Dosage: 50 MCG/HR, EVERY 72 HOURS
     Route: 062

REACTIONS (5)
  - Product adhesion issue [Unknown]
  - Frustration tolerance decreased [Unknown]
  - Product quality issue [Unknown]
  - Suicide attempt [Unknown]
  - Drug ineffective [Unknown]
